FAERS Safety Report 7413725-0 (Version None)
Quarter: 2011Q2

REPORT INFORMATION
  Report Type: 
  Country: None (occurrence: None)
  Receive Date: 20110413
  Receipt Date: 20110406
  Transmission Date: 20111010
  Serious: Yes (Other)
  Sender: FDA-Public Use
  Company Number: JP-PFIZER INC-2011075606

PATIENT

DRUGS (1)
  1. ZITHROMAX [Suspect]
     Route: 048

REACTIONS (1)
  - HAEMATOCHEZIA [None]
